FAERS Safety Report 8900875 (Version 1)
Quarter: 2012Q4

REPORT INFORMATION
  Report Type: 
  Country: US (occurrence: US)
  Receive Date: 20121108
  Receipt Date: 20121108
  Transmission Date: 20130627
  Serious: No
  Sender: FDA-Public Use
  Company Number: US-AMGEN-USASP2012035787

PATIENT
  Age: 60 Year
  Sex: Female

DRUGS (9)
  1. ENBREL [Suspect]
     Indication: PRODUCT USED FOR UNKNOWN INDICATION
     Dosage: 50 mg, qwk
     Route: 058
  2. FUROSEMIDE [Concomitant]
     Dosage: 40 mg, UNK
  3. KLOR-CON M15 [Concomitant]
  4. ALEVE [Concomitant]
     Dosage: 220 mg, UNK
  5. ADVIL                              /00044201/ [Concomitant]
     Dosage: 200 mg, UNK
  6. METHOTREXATE [Concomitant]
     Dosage: 50 mg, UNK
  7. ASPIRIN CHILDREN [Concomitant]
     Dosage: 81 mg, UNK
  8. FOLIC ACID [Concomitant]
     Dosage: 5 mg, UNK
  9. ENALAPRIL [Concomitant]
     Dosage: 5 mg, UNK

REACTIONS (1)
  - Therapeutic response decreased [Unknown]
